FAERS Safety Report 8849062 (Version 1)
Quarter: 2012Q4

REPORT INFORMATION
  Report Type: Report from Study
  Country: BE (occurrence: BE)
  Receive Date: 20121019
  Receipt Date: 20121019
  Transmission Date: 20130627
  Serious: Yes (Death, Hospitalization, Other)
  Sender: FDA-Public Use
  Company Number: BE-MILLENNIUM PHARMACEUTICALS, INC.-2012-06789

PATIENT

DRUGS (12)
  1. VELCADE [Suspect]
     Indication: MULTIPLE MYELOMA
     Dosage: 2.6 UNK, UNK
     Route: 065
     Dates: start: 20070925, end: 20090427
  2. ZOLEDRONIC ACID [Concomitant]
     Dosage: 4 mg, UNK
     Route: 042
     Dates: start: 20070425
  3. DEXAMETHASONE [Concomitant]
     Dosage: 20 mg, UNK
     Route: 048
     Dates: start: 20070925, end: 20071026
  4. ASAFLOW [Concomitant]
     Dosage: 80 UNK, UNK
  5. FOLIC ACID [Concomitant]
     Dosage: 5 mg, UNK
  6. ZANTAC                             /00550802/ [Concomitant]
     Dosage: 300 mg, UNK
  7. METFORMIN [Concomitant]
  8. GLURENORM [Concomitant]
  9. MS DIRECT [Concomitant]
  10. DUROGESIC [Concomitant]
     Dosage: 12.5 ?g, tid
  11. VORINOSTAT [Concomitant]
     Dosage: 400 mg, UNK
     Route: 048
     Dates: start: 20090417, end: 20090501
  12. RED BLOOD CELLS, CONCENTRATED [Concomitant]
     Dosage: 2 UNK, UNK
     Dates: start: 20090409, end: 20090409

REACTIONS (3)
  - Disease progression [Fatal]
  - Malaise [Recovered/Resolved]
  - Hyperviscosity syndrome [Recovered/Resolved]
